FAERS Safety Report 7081619-9 (Version None)
Quarter: 2010Q4

REPORT INFORMATION
  Report Type: 
  Country: None (occurrence: None)
  Receive Date: 20101025
  Receipt Date: 20101011
  Transmission Date: 20110411
  Serious: Yes (Hospitalization)
  Sender: FDA-Public Use
  Company Number: DSM-2010-01406

PATIENT
  Age: 72 Year
  Sex: Female

DRUGS (5)
  1. AXELER (OLMESARTANT MEDOXOMIL, AMLODIPINE BESILATE) (TABLET) (OLMESART [Suspect]
     Indication: HYPERTENSION
     Dosage: 40/5 MG, ORAL
     Route: 048
     Dates: end: 20100420
  2. FLUDEX (INDAPAMIDE) (INDAPAMDIE) [Suspect]
     Indication: PRODUCT USED FOR UNKNOWN INDICATION
     Dosage: 2.5 MG, ORAL
     Route: 048
     Dates: end: 20100420
  3. INEXIUM (ESOMEPRAZOLE MAGNESIUM) (ESOMEPRAZOLE MAGNESIUM) [Suspect]
     Indication: PRODUCT USED FOR UNKNOWN INDICATION
     Dosage: ORAL
     Route: 048
  4. CRESTOR (ROSUVASTAIN) (ROSUVASTATIN) [Concomitant]
  5. PLAVIX (CLOPIDOGREL) (CLOPIDOGREL) [Concomitant]

REACTIONS (5)
  - DEHYDRATION [None]
  - GASTROINTESTINAL MOTILITY DISORDER [None]
  - HYPONATRAEMIA [None]
  - LEUKOCYTOSIS [None]
  - PAIN [None]
